FAERS Safety Report 8487250 (Version 2)
Quarter: 2015Q2

REPORT INFORMATION
  Report Type: Spontaneous
  Country: US (occurrence: US)
  Receive Date: 20120402
  Receipt Date: 20150410
  Transmission Date: 20150821
  Serious: Yes (Congenital Anomaly, Other)
  Sender: FDA-Public Use
  Company Number: US-ELI_LILLY_AND_COMPANY-US201203007132

PATIENT

DRUGS (2)
  1. PROZAC [Suspect]
     Active Substance: FLUOXETINE HYDROCHLORIDE
     Indication: PRODUCT USED FOR UNKNOWN INDICATION
     Dosage: 10 MG, BID
     Route: 064
     Dates: start: 1995, end: 199609
  2. PROZAC [Suspect]
     Active Substance: FLUOXETINE HYDROCHLORIDE
     Indication: PRODUCT USED FOR UNKNOWN INDICATION
     Dosage: 10 MG, BID
     Route: 064
     Dates: start: 1995, end: 199609

REACTIONS (7)
  - Congenital aortic valve stenosis [Unknown]
  - Foetal exposure during pregnancy [Recovered/Resolved with Sequelae]
  - Coarctation of the aorta [Unknown]
  - Ventricular septal defect [Unknown]
  - Pulmonary valve stenosis congenital [Unknown]
  - Neonatal respiratory distress syndrome [Recovered/Resolved]
  - Atrioventricular block complete [Unknown]
